FAERS Safety Report 5373746-9 (Version None)
Quarter: 2007Q2

REPORT INFORMATION
  Report Type: 
  Country: None (occurrence: None)
  Receive Date: 20070628
  Receipt Date: 20070618
  Transmission Date: 20071010
  Serious: Yes (Hospitalization)
  Sender: FDA-Public Use
  Company Number: US-ELI_LILLY_AND_COMPANY-US200706003962

PATIENT
  Sex: Female

DRUGS (1)
  1. HUMALOG [Suspect]

REACTIONS (1)
  - CHOLECYSTECTOMY [None]
